FAERS Safety Report 4438269-X (Version None)
Quarter: 2004Q3

REPORT INFORMATION
  Report Type: 
  Country: None (occurrence: None)
  Receive Date: 20040831
  Receipt Date: 20040706
  Transmission Date: 20050211
  Serious: No
  Sender: FDA-Public Use
  Company Number: US-GLAXOSMITHKLINE-A0517063A

PATIENT
  Age: 71 Year
  Sex: Male

DRUGS (4)
  1. WELLBUTRIN XL [Suspect]
     Indication: DEPRESSION
     Dosage: 450MG TWICE PER DAY
     Route: 048
  2. LAMICTAL [Concomitant]
  3. PROVIGIL [Concomitant]
  4. VIAGRA [Concomitant]

REACTIONS (3)
  - DRUG INEFFECTIVE [None]
  - SEXUAL DYSFUNCTION [None]
  - SLEEP DISORDER [None]
